FAERS Safety Report 24728829 (Version 1)
Quarter: 2024Q4

REPORT INFORMATION
  Report Type: Spontaneous
  Country: US (occurrence: US)
  Receive Date: 20241212
  Receipt Date: 20241212
  Transmission Date: 20250115
  Serious: Yes (Other)
  Sender: VIIV
  Company Number: US-ViiV Healthcare-US2024154726

PATIENT

DRUGS (1)
  1. DOVATO [Suspect]
     Active Substance: DOLUTEGRAVIR SODIUM\LAMIVUDINE
     Indication: HIV infection
     Dosage: UNK

REACTIONS (5)
  - Virologic failure [Recovered/Resolved]
  - Neoplasm malignant [Unknown]
  - Pathogen resistance [Unknown]
  - Viral mutation identified [Unknown]
  - Product dose omission issue [Unknown]
